FAERS Safety Report 16974490 (Version 2)
Quarter: 2020Q3

REPORT INFORMATION
  Report Type: Spontaneous
  Country: FR (occurrence: FR)
  Receive Date: 20191030
  Receipt Date: 20200908
  Transmission Date: 20201102
  Serious: Yes (Other)
  Sender: FDA-Public Use
  Company Number: FR-NOVOPROD-691954

PATIENT
  Age: 47 Year
  Sex: Female
  Weight: 56 kg

DRUGS (14)
  1. PROVAMES [Suspect]
     Active Substance: ESTRADIOL
     Indication: HYPOPITUITARISM
     Dosage: 1 MG, QD
     Route: 048
     Dates: start: 20091208, end: 20131218
  2. HYDROCORTISONE. [Suspect]
     Active Substance: HYDROCORTISONE
     Indication: HYPOPITUITARISM
     Dosage: 15 MG, QD
     Route: 048
     Dates: start: 2004
  3. CLIMASTON [DYDROGESTERONE;ESTRADIOL] [Suspect]
     Active Substance: DYDROGESTERONE\ESTRADIOL
     Indication: HYPOPITUITARISM
     Dosage: 1 DF QD
     Route: 048
     Dates: start: 2004
  4. MINIRIN [Suspect]
     Active Substance: DESMOPRESSIN ACETATE
     Indication: HYPOPITUITARISM
     Dosage: UNK
     Route: 048
     Dates: start: 2004, end: 2010
  5. PROVAMES [Suspect]
     Active Substance: ESTRADIOL
     Dosage: UNK
     Route: 048
  6. SAIZEN [Suspect]
     Active Substance: SOMATROPIN
     Indication: HYPOPITUITARISM
     Dosage: 0.48 MG, QD
     Route: 058
     Dates: start: 2004, end: 20071228
  7. OMNITROPE [Suspect]
     Active Substance: SOMATROPIN
     Indication: HYPOPITUITARISM
     Dosage: 0.9 MG, QD
     Route: 058
     Dates: start: 20180715
  8. NORDITROPIN [Suspect]
     Active Substance: SOMATROPIN
     Indication: HYPOPITUITARISM
     Dosage: 0.9 MG, QD
     Route: 058
     Dates: start: 20071228, end: 20180715
  9. NORDITROPIN [Suspect]
     Active Substance: SOMATROPIN
     Dosage: UNK
     Route: 058
  10. LEVOTHYROX [Suspect]
     Active Substance: LEVOTHYROXINE
     Indication: HYPOPITUITARISM
     Dosage: 125 ???G, QD
     Route: 048
     Dates: start: 2004
  11. CIRCADIN [Suspect]
     Active Substance: MELATONIN
     Indication: HYPOPITUITARISM
     Dosage: 2 MG, QD
     Route: 048
     Dates: start: 20170623
  12. SAIZEN [Suspect]
     Active Substance: SOMATROPIN
     Dosage: UNK
     Route: 058
  13. MINIRINMELT [Suspect]
     Active Substance: DESMOPRESSIN ACETATE
     Indication: HYPOPITUITARISM
     Dosage: 120 ???G, QD
     Route: 048
     Dates: start: 2010
  14. MINIRIN [Suspect]
     Active Substance: DESMOPRESSIN ACETATE
     Dosage: UNK
     Route: 048

REACTIONS (1)
  - Basal cell carcinoma [Recovered/Resolved]

NARRATIVE: CASE EVENT DATE: 2018
